FAERS Safety Report 4523988-7 (Version None)
Quarter: 2004Q4

REPORT INFORMATION
  Report Type: 
  Country: None (occurrence: None)
  Receive Date: 20041210
  Receipt Date: 20031031
  Transmission Date: 20050328
  Serious: Yes (Death, Hospitalization, Other)
  Sender: FDA-Public Use
  Company Number: ES-ABBOTT-03P-144-0239173-01

PATIENT
  Sex: Female
  Weight: 58 kg

DRUGS (24)
  1. HUMIRA [Suspect]
     Indication: RHEUMATOID ARTHRITIS
     Dosage: 40 MG
     Route: 058
     Dates: start: 20030407, end: 20031028
  2. SULFASALAZINE [Concomitant]
     Indication: RHEUMATOID ARTHRITIS
     Route: 048
     Dates: start: 20010401
  3. DEFLAZACORT [Concomitant]
     Indication: RHEUMATOID ARTHRITIS
     Route: 048
     Dates: start: 20030205
  4. NOLOTIL [Concomitant]
     Indication: RHEUMATOID ARTHRITIS
     Route: 048
     Dates: start: 20030205, end: 20030620
  5. NOLOTIL [Concomitant]
     Indication: BACK PAIN
     Route: 048
     Dates: start: 20031019
  6. NOLOTIL [Concomitant]
     Indication: SCIATICA
  7. TRAMADOL HCL [Concomitant]
     Indication: SCIATICA
     Route: 048
     Dates: start: 20030418
  8. TRAMADOL HCL [Concomitant]
     Route: 048
     Dates: start: 20030422, end: 20030422
  9. NALIDIXIC ACID [Concomitant]
     Indication: SCIATICA
     Route: 048
     Dates: start: 20030418, end: 20030613
  10. GABAPENTIN [Concomitant]
     Indication: SCIATICA
     Route: 048
     Dates: start: 20030429, end: 20030610
  11. BETAMETHASONE [Concomitant]
     Indication: RHEUMATOID ARTHRITIS
     Route: 048
     Dates: start: 20030420, end: 20030430
  12. BETAMETHASONE [Concomitant]
     Indication: OTITIS MEDIA
     Route: 014
     Dates: start: 20030422, end: 20030422
  13. BETAMETHASONE [Concomitant]
     Indication: JOINT EFFUSION
     Route: 014
     Dates: start: 20030611, end: 20030611
  14. DEXCHLORPHENIRAMINE MALEATE [Concomitant]
     Indication: OTITIS MEDIA
     Route: 045
     Dates: start: 20030420, end: 20030430
  15. EBASTINE [Concomitant]
     Indication: OTITIS MEDIA
     Route: 048
     Dates: start: 20030420, end: 20030429
  16. AMBROXOL CHLORIDRATE [Concomitant]
     Indication: OTITIS MEDIA
     Route: 048
     Dates: start: 20030427, end: 20030503
  17. MAGMAIC METAMIZIDE [Concomitant]
     Indication: INGUINAL HERNIA REPAIR
     Route: 048
     Dates: start: 20030530, end: 20030603
  18. SULINDAC [Concomitant]
     Indication: RHEUMATOID ARTHRITIS
     Route: 048
     Dates: start: 20020201, end: 20030630
  19. DEXTRIPROPLEEN [Concomitant]
     Indication: OTITIS MEDIA
     Route: 048
     Dates: start: 20030520, end: 20030527
  20. PENTOSAN POLYSULFATE SODIUM [Concomitant]
     Indication: INJECTION SITE REACTION
     Route: 061
     Dates: start: 20030702
  21. TETRAZEPAM [Concomitant]
     Route: 048
     Dates: start: 20030807
  22. OSPOR [Concomitant]
     Indication: OSTEOPOROTIC FRACTURE
     Route: 045
     Dates: start: 20031028
  23. DOGOS [Concomitant]
     Indication: OSTEOPOROSIS
     Route: 048
     Dates: start: 20031028
  24. TRAMADOL HCL [Concomitant]
     Indication: BACK PAIN
     Route: 048
     Dates: start: 20031028

REACTIONS (4)
  - DEEP VEIN THROMBOSIS [None]
  - INTERSTITIAL LUNG DISEASE [None]
  - PNEUMOTHORAX [None]
  - PULMONARY EMBOLISM [None]
